FAERS Safety Report 5247644-5 (Version None)
Quarter: 2007Q1

REPORT INFORMATION
  Report Type: 
  Country: None (occurrence: None)
  Receive Date: 20070227
  Receipt Date: 20070216
  Transmission Date: 20070707
  Serious: Yes (Death)
  Sender: FDA-Public Use
  Company Number: AU-NOVOPROD-260886

PATIENT
  Sex: Male
  Weight: 100 kg

DRUGS (7)
  1. NOVOSEVEN [Suspect]
     Indication: TRAUMATIC HAEMORRHAGE
     Dosage: 3 DOSES
     Route: 042
     Dates: start: 20070215, end: 20070215
  2. MORPHINE [Concomitant]
     Indication: ANALGESIC EFFECT
     Dosage: 20 MG, UNK
     Route: 042
     Dates: start: 20070215, end: 20070215
  3. MAXOLON [Concomitant]
     Indication: ANTIEMETIC SUPPORTIVE CARE
     Dosage: 10 MG, UNK
     Route: 042
     Dates: start: 20070215, end: 20070215
  4. MIDAZOLAM HCL [Concomitant]
     Indication: SEDATION
     Dosage: 1 MG, UNK
     Route: 042
     Dates: start: 20070215, end: 20070215
  5. DEXTROSE [Concomitant]
     Indication: HYPERKALAEMIA
     Dosage: 20 ML, UNK
     Route: 042
     Dates: start: 20070215, end: 20070215
  6. ACTRAPID [Concomitant]
     Indication: HYPERKALAEMIA
     Dosage: 10 IU, UNK
     Route: 042
     Dates: start: 20070215, end: 20070215
  7. CALCIUM GLUCONATE [Concomitant]
     Indication: BLOOD ELECTROLYTES ABNORMAL
     Dosage: 20 ML, UNK
     Route: 042
     Dates: start: 20070215, end: 20070215

REACTIONS (1)
  - HAEMORRHAGE [None]
